FAERS Safety Report 19841270 (Version 1)
Quarter: 2021Q3

REPORT INFORMATION
  Report Type: Spontaneous
  Country: US (occurrence: US)
  Receive Date: 20210915
  Receipt Date: 20210915
  Transmission Date: 20211014
  Serious: Yes (Other)
  Sender: FDA-Public Use
  Company Number: US-LUPIN PHARMACEUTICALS INC.-2021-17256

PATIENT
  Age: 46 Year
  Sex: Female

DRUGS (7)
  1. TRAZODONE [Interacting]
     Active Substance: TRAZODONE HYDROCHLORIDE
     Indication: DEPRESSION
     Dosage: 50 MILLIGRAM, QD, AT NIGHT
     Route: 065
  2. GABAPENTIN. [Concomitant]
     Active Substance: GABAPENTIN
     Indication: ERYTHROMELALGIA
     Dosage: 600 MILLIGRAM, TID, THREE TIMES DAILY
     Route: 065
  3. PENTOXIFYLLINE. [Concomitant]
     Active Substance: PENTOXIFYLLINE
     Indication: ERYTHROMELALGIA
     Dosage: 400 MILLIGRAM, TID, THREE TIMES DAILY
     Route: 065
  4. TRAMADOL. [Suspect]
     Active Substance: TRAMADOL
     Indication: ERYTHROMELALGIA
     Dosage: 50 MILLIGRAM, TID, AS NEEDED THREE TIMES DAILY
     Route: 065
  5. OXYCODONE AND ACETAMINOPHEN [Concomitant]
     Active Substance: ACETAMINOPHEN\OXYCODONE HYDROCHLORIDE
     Indication: ERYTHROMELALGIA
     Dosage: 10 MILLIGRAM, PRN, AS NEEDED EVERY 6 HOURS
     Route: 065
  6. ZOLPIDEM [Concomitant]
     Active Substance: ZOLPIDEM TARTRATE
     Indication: INSOMNIA
     Dosage: 10 MILLIGRAM, QD, EVERY NIGHT
     Route: 065
  7. CLONAZEPAM. [Concomitant]
     Active Substance: CLONAZEPAM
     Indication: ERYTHROMELALGIA
     Dosage: 0.5 MILLIGRAM, BID
     Route: 065

REACTIONS (2)
  - Serotonin syndrome [Recovered/Resolved]
  - Drug interaction [Unknown]
